FAERS Safety Report 9940845 (Version 1)
Quarter: 2014Q1

REPORT INFORMATION
  Report Type: Spontaneous
  Country: CL (occurrence: CL)
  Receive Date: 20140303
  Receipt Date: 20140303
  Transmission Date: 20141002
  Serious: Yes (Other)
  Sender: FDA-Public Use
  Company Number: CL-PFIZER INC-2014057991

PATIENT
  Age: 94 Year
  Sex: Female

DRUGS (3)
  1. XALATAN [Suspect]
     Indication: GLAUCOMA
     Dosage: 1 DROP, 1X/DAY
     Route: 047
     Dates: start: 2004
  2. LOSARTAN [Concomitant]
  3. RISPERIDONE [Concomitant]

REACTIONS (5)
  - Eye disorder [Unknown]
  - Senile dementia [Not Recovered/Not Resolved]
  - Bedridden [Not Recovered/Not Resolved]
  - Speech disorder [Not Recovered/Not Resolved]
  - Angiopathy [Not Recovered/Not Resolved]
